FAERS Safety Report 13734017 (Version 1)
Quarter: 2017Q3

REPORT INFORMATION
  Report Type: Spontaneous
  Country: CA (occurrence: CA)
  Receive Date: 20170708
  Receipt Date: 20170708
  Transmission Date: 20171127
  Serious: Yes (Hospitalization, Other)
  Sender: FDA-Public Use
  Company Number: CA-009507513-1706LBN009652

PATIENT
  Age: 36 Year
  Sex: Female

DRUGS (4)
  1. LUTROPIN ALFA [Suspect]
     Active Substance: LUTROPIN ALFA
     Indication: IN VITRO FERTILISATION
  2. FOLLITROPIN ALFA [Suspect]
     Active Substance: FOLLITROPIN
     Indication: IN VITRO FERTILISATION
  3. SUPREFACT [Suspect]
     Active Substance: BUSERELIN
     Indication: IN VITRO FERTILISATION
  4. GONADOTROPIN, CHORIONIC [Suspect]
     Active Substance: CHORIOGONADOTROPIN ALFA
     Indication: IN VITRO FERTILISATION

REACTIONS (2)
  - Pancreatitis acute [Unknown]
  - Hypertriglyceridaemia [Unknown]
